FAERS Safety Report 4733137-8 (Version None)
Quarter: 2005Q3

REPORT INFORMATION
  Report Type: 
  Country: None (occurrence: None)
  Receive Date: 20050801
  Receipt Date: 20050801
  Transmission Date: 20060218
  Serious: Yes (Hospitalization)
  Sender: FDA-Public Use
  Company Number: None

PATIENT
  Age: 80 Year
  Sex: Male

DRUGS (3)
  1. WARFARIN [Suspect]
     Indication: ATRIAL FIBRILLATION
     Dosage: 4 MG QD
     Dates: start: 20040430
  2. HYDROCHLOROTHIAZIDE [Concomitant]
  3. RANITIDINE [Concomitant]

REACTIONS (1)
  - EPISTAXIS [None]
